FAERS Safety Report 23969740 (Version 4)
Quarter: 2024Q3

REPORT INFORMATION
  Report Type: Report from Study
  Country: CA (occurrence: CA)
  Receive Date: 20240613
  Receipt Date: 20240903
  Transmission Date: 20241017
  Serious: Yes (Hospitalization, Other)
  Sender: JOHNSON AND JOHNSON
  Company Number: CA-JNJFOC-20240482099

PATIENT
  Age: 71 Year
  Sex: Female

DRUGS (2)
  1. REMICADE [Suspect]
     Active Substance: INFLIXIMAB
     Indication: Crohn^s disease
     Dosage: EXPIRY DATE: NOV-2025, NOV-2026
     Route: 041
     Dates: start: 20140916
  2. IMURAN [Concomitant]
     Active Substance: AZATHIOPRINE
     Dosage: 1 TABLET DAILY

REACTIONS (5)
  - Vision blurred [Unknown]
  - Brain fog [Recovering/Resolving]
  - Hypertension [Recovering/Resolving]
  - Haematological infection [Recovering/Resolving]
  - Diarrhoea [Unknown]

NARRATIVE: CASE EVENT DATE: 20240424
